FAERS Safety Report 10380963 (Version 1)
Quarter: 2014Q1

REPORT INFORMATION
  Report Type: Spontaneous
  Country: US (occurrence: None)
  Receive Date: 20140306
  Receipt Date: 20140306
  Transmission Date: 20141002
  Serious: Yes (Hospitalization, Other)
  Sender: FDA-Public Use
  Company Number: 163-21880-13020182

PATIENT
  Age: 94 Year
  Sex: Male
  Weight: 74.39 kg

DRUGS (20)
  1. REVLIMID (LENALIDOMIDE) (5 MILLIGRAM, CAPSULES) [Suspect]
     Indication: PLASMA CELL MYELOMA
     Dosage: 5 MG, 21 IN 21 D, PO
     Route: 048
     Dates: start: 20121105
  2. METOPROLOL TARTRATE [Concomitant]
  3. COUMADIN (WARFARIN SODIUM) [Concomitant]
  4. ASPIRIN (ACETYLSALICYLIC ACID) [Concomitant]
  5. AVODART (DUTASTERIDE) CAPSULES [Concomitant]
  6. HYDROCODONE/IBUPROFEN (VICOPROFEN) [Concomitant]
  7. METAMUCIL (PLANTAGO OVATA FIBRE) [Concomitant]
  8. DEXAMETHASONE [Concomitant]
  9. NAPROXEN [Concomitant]
  10. NORCO (VICODIN) [Concomitant]
  11. LISINOPRIL [Concomitant]
  12. PROTONIX [Concomitant]
  13. VELCADE (BORTEZOMIB) [Concomitant]
  14. CALCIUM CITRATE [Concomitant]
  15. DUTASTERIDE [Concomitant]
  16. HYDROCODONE/ACETAMINOPHEN (REMEDEINE) [Concomitant]
  17. TOLTERODINE [Concomitant]
  18. GUAIFENESIN [Concomitant]
  19. ACETAMINOPHEN (PARACETAMOL) [Concomitant]
  20. MAGNESIUM HYDROXIDE [Concomitant]

REACTIONS (4)
  - Atrial fibrillation [None]
  - Haemoglobin decreased [None]
  - Supraventricular tachycardia [None]
  - Hypotension [None]
